FAERS Safety Report 4772399-8 (Version None)
Quarter: 2005Q3

REPORT INFORMATION
  Report Type: 
  Country: None (occurrence: None)
  Receive Date: 20050919
  Receipt Date: 20050506
  Transmission Date: 20060218
  Serious: No
  Sender: FDA-Public Use
  Company Number: US-BRISTOL-MYERS SQUIBB COMPANY-12959268

PATIENT
  Age: 44 Year
  Sex: Female
  Weight: 109 kg

DRUGS (1)
  1. KENALOG-40 [Suspect]
     Indication: SHOULDER PAIN
     Dates: start: 20050503, end: 20050503

REACTIONS (2)
  - ABDOMINAL DISCOMFORT [None]
  - INSOMNIA [None]
